FAERS Safety Report 7345289-4 (Version None)
Quarter: 2011Q1

REPORT INFORMATION
  Report Type: 
  Country: None (occurrence: None)
  Receive Date: 20110310
  Receipt Date: 20110225
  Transmission Date: 20110831
  Serious: Yes (Death, Hospitalization)
  Sender: FDA-Public Use
  Company Number: IT-GENENTECH-294487

PATIENT
  Sex: Female

DRUGS (15)
  1. ENDOXAN [Suspect]
     Indication: DIFFUSE LARGE B-CELL LYMPHOMA
     Dosage: 750 MG/M2, UNK
     Route: 042
     Dates: start: 20091014, end: 20091014
  2. FARMORUBICINA [Suspect]
     Indication: DIFFUSE LARGE B-CELL LYMPHOMA
     Dosage: 75 MG/M2, UNK
     Route: 042
     Dates: start: 20091014, end: 20091014
  3. ATENOLOLO [Concomitant]
     Indication: PRODUCT USED FOR UNKNOWN INDICATION
     Dosage: 100 MG, UNK
     Route: 048
     Dates: start: 20050101, end: 20091021
  4. CATAPRESAN TTS [Concomitant]
     Indication: PRODUCT USED FOR UNKNOWN INDICATION
     Dosage: 2.5 MG, UNK
     Route: 062
     Dates: start: 20050101, end: 20091021
  5. DELTACORTENE [Concomitant]
     Indication: DIFFUSE LARGE B-CELL LYMPHOMA
     Dosage: 100 MG, UNK
     Route: 048
     Dates: start: 20091014, end: 20091018
  6. HYDROMORPHONE HCL [Concomitant]
     Indication: PRODUCT USED FOR UNKNOWN INDICATION
     Dosage: 12 MG, UNK
     Route: 048
     Dates: start: 20101223
  7. MABTHERA [Suspect]
     Indication: DIFFUSE LARGE B-CELL LYMPHOMA
     Dosage: 375 MG/M2, UNK
     Route: 042
     Dates: start: 20091013, end: 20091013
  8. ENDOXAN [Suspect]
     Dosage: UNK
     Route: 042
     Dates: start: 20091124
  9. BARACLUDE [Concomitant]
     Indication: PRODUCT USED FOR UNKNOWN INDICATION
     Dosage: .5 MG, UNK
     Route: 048
     Dates: start: 20101223
  10. METFORMIN [Concomitant]
     Indication: PRODUCT USED FOR UNKNOWN INDICATION
     Dosage: 1000 MG, UNK
     Route: 048
     Dates: start: 20101223
  11. FARMORUBICINA [Suspect]
     Dosage: UNK
     Route: 042
     Dates: start: 20091124
  12. VINCRISTINA [Suspect]
     Indication: DIFFUSE LARGE B-CELL LYMPHOMA
     Dosage: 1.4 MG/M2, UNK
     Route: 042
     Dates: start: 20091014, end: 20091014
  13. VINCRISTINA [Suspect]
     Dosage: UNK
     Route: 042
     Dates: start: 20091124
  14. ALLOPURINOL [Concomitant]
     Indication: PRODUCT USED FOR UNKNOWN INDICATION
     Dosage: 300 MG, UNK
     Route: 048
     Dates: start: 20101223
  15. MABTHERA [Suspect]
     Dosage: 600 MG, UNK
     Route: 042
     Dates: start: 20091123, end: 20101214

REACTIONS (6)
  - DEHYDRATION [None]
  - DIARRHOEA [None]
  - FEBRILE NEUTROPENIA [None]
  - PLEURAL EFFUSION [None]
  - STOMATITIS [None]
  - CATHETER SITE HAEMORRHAGE [None]
